FAERS Safety Report 4877019-X (Version None)
Quarter: 2005Q4

REPORT INFORMATION
  Report Type: 
  Country: None (occurrence: None)
  Receive Date: 20051206
  Receipt Date: 20050811
  Transmission Date: 20060501
  Serious: No
  Sender: FDA-Public Use
  Company Number: USA0508105266

PATIENT
  Age: 43 Year
  Sex: Female

DRUGS (3)
  1. CYMBALTA [Suspect]
     Indication: ARTHRITIS
     Route: 065
     Dates: start: 20050801
  2. CYMBALTA [Suspect]
     Indication: PAIN
     Route: 065
     Dates: start: 20050801
  3. NEXIUM [Concomitant]

REACTIONS (1)
  - ABDOMINAL DISTENSION [None]
